FAERS Safety Report 15698448 (Version 1)
Quarter: 2018Q4

REPORT INFORMATION
  Report Type: Report from Study
  Country: GB (occurrence: GB)
  Receive Date: 20181207
  Receipt Date: 20181207
  Transmission Date: 20190205
  Serious: Yes (Death)
  Sender: FDA-Public Use
  Company Number: GB-ROCHE-2226210

PATIENT

DRUGS (1)
  1. RITUXIMAB. [Suspect]
     Active Substance: RITUXIMAB
     Indication: RHEUMATIC DISORDER
     Route: 065

REACTIONS (3)
  - Acute respiratory distress syndrome [Fatal]
  - Cytomegalovirus viraemia [Fatal]
  - Pneumocystis jirovecii pneumonia [Fatal]
